FAERS Safety Report 18423606 (Version 3)
Quarter: 2024Q3

REPORT INFORMATION
  Report Type: Spontaneous
  Country: PL (occurrence: PL)
  Receive Date: 20201024
  Receipt Date: 20240717
  Transmission Date: 20241017
  Serious: Yes (Other)
  Sender: ACCORD
  Company Number: PL-ACCORD-206041

PATIENT
  Age: 72 Year
  Sex: Female

DRUGS (3)
  1. DOCETAXEL [Suspect]
     Active Substance: DOCETAXEL\DOCETAXEL ANHYDROUS
     Indication: Intestinal metastasis
  2. PERTUZUMAB [Suspect]
     Active Substance: PERTUZUMAB
     Indication: Intestinal metastasis
  3. HERCEPTIN [Suspect]
     Active Substance: TRASTUZUMAB
     Indication: Intestinal metastasis

REACTIONS (2)
  - Polyneuropathy [Recovered/Resolved]
  - Condition aggravated [Recovered/Resolved]
